FAERS Safety Report 7775283-0 (Version None)
Quarter: 2011Q3

REPORT INFORMATION
  Report Type: 
  Country: None (occurrence: None)
  Receive Date: 20110921
  Receipt Date: 20110907
  Transmission Date: 20111222
  Serious: No
  Sender: FDA-Public Use
  Company Number: US-1187721

PATIENT
  Age: 76 Year
  Sex: Female

DRUGS (5)
  1. OMNIPRED [Suspect]
     Indication: CATARACT OPERATION
     Dosage: OPTHALMIC
     Route: 047
     Dates: start: 20110815
  2. BRIMONIDINE TARTRATE [Suspect]
     Indication: CATARACT OPERATION
     Dosage: INTRAOCULAR
     Route: 031
     Dates: start: 20110815
  3. BSS PLUS [Suspect]
     Indication: INTRAOCULAR LENS IMPLANT
     Dosage: INTRAOCULAR
     Route: 031
     Dates: start: 20110815, end: 20110815
  4. TIMOLOL MALEATE [Suspect]
     Indication: CATARACT OPERATION
     Dosage: OPHTHALMIC
     Route: 047
     Dates: start: 20110815, end: 20110815
  5. EPINEPHRINE [Concomitant]

REACTIONS (2)
  - EYE INFLAMMATION [None]
  - CATARACT OPERATION COMPLICATION [None]
